FAERS Safety Report 10170266 (Version 1)
Quarter: 2014Q2

REPORT INFORMATION
  Report Type: Spontaneous
  Country: DE (occurrence: DE)
  Receive Date: 20140513
  Receipt Date: 20140513
  Transmission Date: 20141212
  Serious: Yes (Other)
  Sender: FDA-Public Use
  Company Number: DE-MYLANLABS-2014S1009992

PATIENT
  Age: 1 Day
  Sex: Male
  Weight: 3.05 kg

DRUGS (2)
  1. BISOPROLOL [Suspect]
     Indication: TACHYCARDIA
     Dosage: 2.5 [MG/D ]
     Route: 064
     Dates: start: 20121022, end: 20130712
  2. DOPPELHERZ [Concomitant]
     Indication: PROPHYLAXIS OF NEURAL TUBE DEFECT
     Dosage: 0.4 [MG/D ]
     Route: 064
     Dates: start: 20121022, end: 20130712

REACTIONS (2)
  - Hypoglycaemia neonatal [Recovered/Resolved]
  - Exposure during pregnancy [Recovered/Resolved]
